FAERS Safety Report 7531665-3 (Version None)
Quarter: 2011Q2

REPORT INFORMATION
  Report Type: 
  Country: None (occurrence: None)
  Receive Date: 20110601
  Receipt Date: 20110524
  Transmission Date: 20111010
  Serious: Yes (Death, Other)
  Sender: FDA-Public Use
  Company Number: 2005JP000046

PATIENT
  Age: 8 Month
  Sex: Male

DRUGS (5)
  1. PROSTACYCLIN (EPOPROSTENOL) [Concomitant]
  2. CYCLOPHOSPHAMIDE [Concomitant]
  3. ZENAPAX [Concomitant]
  4. STEROID [Concomitant]
  5. PROGRAF [Suspect]
     Indication: SMALL INTESTINE TRANSPLANT
     Dosage: 0.05 MG/KG,
     Dates: start: 20010615

REACTIONS (5)
  - HEPATIC FAILURE [None]
  - INTESTINAL PERFORATION [None]
  - VENOUS THROMBOSIS [None]
  - OFF LABEL USE [None]
  - SEPTIC SHOCK [None]
